FAERS Safety Report 5329990-X (Version None)
Quarter: 2007Q2

REPORT INFORMATION
  Report Type: 
  Country: None (occurrence: None)
  Receive Date: 20070521
  Receipt Date: 20070518
  Transmission Date: 20071010
  Serious: Yes (Other)
  Sender: FDA-Public Use
  Company Number: A0651856A

PATIENT

DRUGS (1)
  1. COREG CR [Suspect]
     Indication: DRUG USE FOR UNKNOWN INDICATION
     Dosage: 40MG PER DAY
     Route: 048
     Dates: start: 20070401

REACTIONS (2)
  - HEART RATE INCREASED [None]
  - SUPRAVENTRICULAR TACHYCARDIA [None]
